FAERS Safety Report 10416865 (Version 1)
Quarter: 2014Q3

REPORT INFORMATION
  Report Type: Spontaneous
  Country: US (occurrence: None)
  Receive Date: 20140826
  Receipt Date: 20140826
  Transmission Date: 20150326
  Serious: Yes (Hospitalization, Other)
  Sender: FDA-Public Use
  Company Number: US-ZYDUS-004182

PATIENT
  Age: 43 Year
  Sex: Male

DRUGS (4)
  1. RIFAMPICIN (RIFAMPICIN) [Suspect]
     Active Substance: RIFAMPIN
     Indication: Q FEVER
  2. DOXYCYCLINE. [Concomitant]
     Active Substance: DOXYCYCLINE
  3. HYDROXYCHLOROQUINE (HYDROXYCHLOROQUINE) (HYDROCHLOROQUINE) [Suspect]
     Active Substance: HYDROXYCHLOROQUINE
     Indication: Q FEVER
  4. CIPROFLOXACINE (CIPROFLOXACINE) [Suspect]
     Active Substance: CIPROFLOXACIN

REACTIONS (6)
  - Hypertensive crisis [None]
  - Drug interaction [None]
  - Nausea [None]
  - Hepatic enzyme increased [None]
  - Acute psychosis [None]
  - Vomiting [None]
